FAERS Safety Report 21521302 (Version 1)
Quarter: 2022Q4

REPORT INFORMATION
  Report Type: Spontaneous
  Country: US (occurrence: US)
  Receive Date: 20221028
  Receipt Date: 20221028
  Transmission Date: 20230113
  Serious: No
  Sender: FDA-Public Use
  Company Number: US-GSK-US2022AMR150554

PATIENT
  Age: 57 Year
  Sex: Female

DRUGS (1)
  1. BENLYSTA [Suspect]
     Active Substance: BELIMUMAB
     Indication: Product used for unknown indication
     Dosage: UNK
     Route: 058
     Dates: start: 2022

REACTIONS (6)
  - Respiratory syncytial virus test positive [Unknown]
  - Secretion discharge [Unknown]
  - Paranasal sinus discomfort [Unknown]
  - Pyrexia [Unknown]
  - Oropharyngeal pain [Unknown]
  - Nasal congestion [Unknown]

NARRATIVE: CASE EVENT DATE: 20221015
